FAERS Safety Report 4946003-X (Version None)
Quarter: 2006Q1

REPORT INFORMATION
  Report Type: 
  Country: None (occurrence: None)
  Receive Date: 20060203
  Receipt Date: 20041208
  Transmission Date: 20060701
  Serious: Yes (Other)
  Sender: FDA-Public Use
  Company Number: MK200412-0188-1

PATIENT

DRUGS (1)
  1. OXYCODONE 5/APAP 500 [Suspect]

REACTIONS (1)
  - DYSPNOEA [None]
